FAERS Safety Report 15290481 (Version 1)
Quarter: 2018Q3

REPORT INFORMATION
  Report Type: Spontaneous
  Country: US (occurrence: US)
  Receive Date: 20180817
  Receipt Date: 20180817
  Transmission Date: 20181010
  Serious: No
  Sender: FDA-Public Use
  Company Number: US-GUERBET-US-20180143

PATIENT
  Age: 57 Year
  Sex: Female
  Weight: 106.1 kg

DRUGS (1)
  1. OPTIRAY [Suspect]
     Active Substance: IOVERSOL
     Indication: COMPUTERISED TOMOGRAM
     Route: 065

REACTIONS (6)
  - Pruritus [Recovered/Resolved]
  - Sinus headache [Unknown]
  - Eye swelling [Recovering/Resolving]
  - Malaise [Unknown]
  - Tachycardia [Recovering/Resolving]
  - Blood pressure increased [Recovering/Resolving]

NARRATIVE: CASE EVENT DATE: 20180330
